FAERS Safety Report 8260061-9 (Version None)
Quarter: 2012Q2

REPORT INFORMATION
  Report Type: 
  Country: None (occurrence: None)
  Receive Date: 20120404
  Receipt Date: 20120330
  Transmission Date: 20120825
  Serious: No
  Sender: FDA-Public Use
  Company Number: US-TEVA-325138USA

PATIENT
  Sex: Male

DRUGS (7)
  1. ATENOLOL [Concomitant]
     Indication: HYPERTENSION
     Dosage: 12.5 MILLIGRAM;
     Route: 048
  2. SINEMET [Concomitant]
     Indication: PARKINSON'S DISEASE
     Dosage: 25MG/100 MG
     Route: 048
  3. ACETYLSALICYLIC ACID SRT [Concomitant]
     Route: 048
  4. DIAZEPAM [Concomitant]
     Route: 048
  5. VITACAL                            /01535001/ [Concomitant]
     Indication: MEDICAL DIET
     Route: 048
  6. AZILECT [Suspect]
     Indication: PARKINSON'S DISEASE
     Dosage: .5 MILLIGRAM;
     Route: 048
     Dates: start: 20120223, end: 20120226
  7. SIMVASTATIN [Concomitant]
     Indication: HYPERCHOLESTEROLAEMIA
     Route: 048

REACTIONS (2)
  - HEADACHE [None]
  - DIZZINESS [None]
